FAERS Safety Report 11109739 (Version 3)
Quarter: 2017Q1

REPORT INFORMATION
  Report Type: Spontaneous
  Country: US (occurrence: US)
  Receive Date: 20150513
  Receipt Date: 20170123
  Transmission Date: 20170428
  Serious: Yes (Other)
  Sender: FDA-Public Use
  Company Number: US-ELI_LILLY_AND_COMPANY-US201505003426

PATIENT
  Sex: Female

DRUGS (5)
  1. CYMBALTA [Suspect]
     Active Substance: DULOXETINE HYDROCHLORIDE
     Indication: PAIN
     Dosage: 30 MG, QD
     Route: 048
     Dates: start: 20060617
  2. CYMBALTA [Suspect]
     Active Substance: DULOXETINE HYDROCHLORIDE
     Dosage: 60 MG, QD
     Dates: start: 20120830
  3. CYMBALTA [Suspect]
     Active Substance: DULOXETINE HYDROCHLORIDE
     Dosage: 20 MG, UNK
     Dates: start: 20130409, end: 20130510
  4. CYMBALTA [Suspect]
     Active Substance: DULOXETINE HYDROCHLORIDE
     Indication: NEUROPATHY PERIPHERAL
     Dosage: 30 MG, BID
  5. CYMBALTA [Suspect]
     Active Substance: DULOXETINE HYDROCHLORIDE
     Dosage: 60 MG, BID
     Dates: start: 20080606

REACTIONS (28)
  - Mood swings [Unknown]
  - Confusional state [Unknown]
  - Panic attack [Unknown]
  - Nightmare [Unknown]
  - Aggression [Unknown]
  - Headache [Unknown]
  - Diarrhoea [Unknown]
  - Sensory disturbance [Unknown]
  - Fatigue [Unknown]
  - Vertigo [Unknown]
  - Nausea [Unknown]
  - Vomiting [Unknown]
  - Affect lability [Unknown]
  - Paraesthesia [Unknown]
  - Agitation [Unknown]
  - Irritability [Unknown]
  - Dysphoria [Unknown]
  - Anxiety [Unknown]
  - Dizziness [Unknown]
  - Insomnia [Unknown]
  - Hypomania [Unknown]
  - Memory impairment [Unknown]
  - Disturbance in attention [Unknown]
  - Tremor [Unknown]
  - Suicidal ideation [Unknown]
  - Sleep disorder [Unknown]
  - Hyperhidrosis [Unknown]
  - Drug withdrawal syndrome [Unknown]
